FAERS Safety Report 5411383-8 (Version None)
Quarter: 2007Q3

REPORT INFORMATION
  Report Type: 
  Country: None (occurrence: None)
  Receive Date: 20070810
  Receipt Date: 20070801
  Transmission Date: 20080115
  Serious: Yes (Disabling)
  Sender: FDA-Public Use
  Company Number: US-KINGPHARMUSA00001-K200700850

PATIENT

DRUGS (9)
  1. CYTOMEL [Suspect]
     Indication: HYPOTHYROIDISM
     Dosage: 10 MCG, QD
     Route: 048
     Dates: start: 20030101
  2. CYTOMEL [Suspect]
     Dosage: 20 MG, QD
     Route: 048
  3. CYTOMEL [Suspect]
     Dosage: 10 MG, QD
     Route: 048
     Dates: start: 20040301
  4. LEVOXYL [Suspect]
     Indication: HYPOTHYROIDISM
     Dosage: 75 MCG, QD
     Route: 048
     Dates: start: 20030101
  5. LEVOXYL [Suspect]
     Dosage: 62.5 MCG, QD
     Route: 048
     Dates: start: 20040301
  6. LUNESTA [Concomitant]
     Indication: INITIAL INSOMNIA
     Dates: start: 20040101
  7. LYRICA [Concomitant]
     Indication: BURNING SENSATION
  8. MULTIVITAMIN [Concomitant]
  9. MINERALS NOS [Concomitant]

REACTIONS (9)
  - GAIT DISTURBANCE [None]
  - INSOMNIA [None]
  - MUSCLE RIGIDITY [None]
  - NEUROPATHY [None]
  - PAIN [None]
  - SKIN BURNING SENSATION [None]
  - TENSION [None]
  - UNEVALUABLE EVENT [None]
  - WEIGHT DECREASED [None]
